FAERS Safety Report 12632430 (Version 2)
Quarter: 2016Q3

REPORT INFORMATION
  Report Type: Spontaneous
  Country: US (occurrence: US)
  Receive Date: 20160808
  Receipt Date: 20160808
  Transmission Date: 20161109
  Serious: No
  Sender: FDA-Public Use
  Company Number: US-BEH-2016062825

PATIENT
  Sex: Male
  Weight: 99 kg

DRUGS (28)
  1. HIZENTRA [Suspect]
     Active Substance: HUMAN IMMUNOGLOBULIN G
     Indication: HYPOGLOBULINAEMIA
     Route: 058
  2. PREDNISONE. [Concomitant]
     Active Substance: PREDNISONE
  3. MULTIPLE VITAMINS [Concomitant]
     Active Substance: VITAMINS
  4. TAMSULOSIN [Concomitant]
     Active Substance: TAMSULOSIN
  5. MORPHINE SULFATE. [Concomitant]
     Active Substance: MORPHINE SULFATE
  6. BUDESONIDE. [Concomitant]
     Active Substance: BUDESONIDE
  7. GABAPENTIN. [Concomitant]
     Active Substance: GABAPENTIN
  8. LIDOCAINE. [Concomitant]
     Active Substance: LIDOCAINE
  9. EPIPEN [Concomitant]
     Active Substance: EPINEPHRINE
  10. PROVENTIL [Concomitant]
     Active Substance: ALBUTEROL
  11. FISH OIL [Concomitant]
     Active Substance: FISH OIL
  12. COLCHICINE. [Concomitant]
     Active Substance: COLCHICINE
  13. ACYCLOVIR. [Concomitant]
     Active Substance: ACYCLOVIR
  14. FUROSEMIDE. [Concomitant]
     Active Substance: FUROSEMIDE
  15. BROVANA [Concomitant]
     Active Substance: ARFORMOTEROL TARTRATE
  16. ASPIRIN. [Concomitant]
     Active Substance: ASPIRIN
  17. ALLOPURINOL. [Concomitant]
     Active Substance: ALLOPURINOL
  18. LOSARTAN. [Concomitant]
     Active Substance: LOSARTAN
  19. MUCINEX [Concomitant]
     Active Substance: GUAIFENESIN
  20. OXYGEN. [Concomitant]
     Active Substance: OXYGEN
  21. HIZENTRA [Suspect]
     Active Substance: HUMAN IMMUNOGLOBULIN G
     Indication: SELECTIVE IGA IMMUNODEFICIENCY
     Route: 058
  22. VITAMIN D [Concomitant]
     Active Substance: CHOLECALCIFEROL
  23. ACETAMINOPHEN. [Concomitant]
     Active Substance: ACETAMINOPHEN
  24. DIPHENHYDRAMINE. [Concomitant]
     Active Substance: DIPHENHYDRAMINE
  25. AZITHROMYCIN ANHYDROUS. [Concomitant]
     Active Substance: AZITHROMYCIN ANHYDROUS
  26. HIZENTRA [Suspect]
     Active Substance: HUMAN IMMUNOGLOBULIN G
     Indication: IMMUNODEFICIENCY COMMON VARIABLE
     Route: 058
  27. DALIRESP [Concomitant]
     Active Substance: ROFLUMILAST
  28. SODIUM CHLORIDE. [Concomitant]
     Active Substance: SODIUM CHLORIDE

REACTIONS (1)
  - Infection [Unknown]
